FAERS Safety Report 17841187 (Version 1)
Quarter: 2020Q2

REPORT INFORMATION
  Report Type: Spontaneous
  Country: US (occurrence: US)
  Receive Date: 20200529
  Receipt Date: 20200529
  Transmission Date: 20200714
  Serious: Yes (Other)
  Sender: FDA-Public Use
  Company Number: US-JNJFOC-20200524027

PATIENT
  Sex: Female
  Weight: 57.66 kg

DRUGS (6)
  1. ROSUVASTATIN. [Concomitant]
     Active Substance: ROSUVASTATIN
  2. ESTROGEN [Concomitant]
     Active Substance: ESTROGENS
  3. XARELTO [Suspect]
     Active Substance: RIVAROXABAN
     Indication: DEEP VEIN THROMBOSIS
     Route: 048
     Dates: start: 202002
  4. MAGNESIUM [Concomitant]
     Active Substance: MAGNESIUM
  5. HYDROCODONE [Concomitant]
     Active Substance: HYDROCODONE
  6. CALCIUM [Concomitant]
     Active Substance: CALCIUM

REACTIONS (4)
  - Heart rate increased [Unknown]
  - Headache [Unknown]
  - Meniere^s disease [Unknown]
  - Dizziness [Unknown]

NARRATIVE: CASE EVENT DATE: 2020
